FAERS Safety Report 8717726 (Version 5)
Quarter: 2013Q3

REPORT INFORMATION
  Report Type: Spontaneous
  Country: US (occurrence: US)
  Receive Date: 20120810
  Receipt Date: 20130919
  Transmission Date: 20140515
  Serious: Yes (Death, Hospitalization, Other)
  Sender: FDA-Public Use
  Company Number: US-009507513-1208USA001313

PATIENT
  Sex: Female

DRUGS (5)
  1. FOSAMAX [Suspect]
     Indication: OSTEOPENIA
     Dosage: 70 MG, QW
     Route: 048
     Dates: start: 1996, end: 2009
  2. FOSAMAX PLUS D [Suspect]
     Indication: OSTEOPENIA
     Dosage: 70 MG/ 2800 IU, QW
     Route: 048
     Dates: start: 2000, end: 200907
  3. VITAMINS (UNSPECIFIED) [Concomitant]
     Dosage: UNK
     Route: 048
     Dates: start: 1998
  4. NEXIUM [Concomitant]
     Dosage: UNK
     Dates: start: 2005
  5. SYNTHROID [Concomitant]
     Indication: HYPOTHYROIDISM
     Dosage: 75 MICROGRAM, QD
     Route: 048

REACTIONS (38)
  - Femur fracture [Unknown]
  - Intramedullary rod insertion [Unknown]
  - Death [Fatal]
  - Colon cancer [Unknown]
  - Urinary tract infection [Recovering/Resolving]
  - Urosepsis [Recovering/Resolving]
  - Malnutrition [Recovering/Resolving]
  - Hypophagia [Recovering/Resolving]
  - Haemothorax [Recovering/Resolving]
  - Thyroidectomy [Unknown]
  - Neurogenic bladder [Unknown]
  - Rib fracture [Recovering/Resolving]
  - Acute respiratory failure [Recovering/Resolving]
  - Sigmoidectomy [Unknown]
  - Neoplasm malignant [Unknown]
  - Bursitis [Recovered/Resolved]
  - Vitamin D deficiency [Unknown]
  - Blood cholesterol increased [Not Recovered/Not Resolved]
  - Osteoporosis [Unknown]
  - Fall [Unknown]
  - Wrist fracture [Unknown]
  - Dementia Alzheimer^s type [Unknown]
  - Hysterectomy [Unknown]
  - Fall [Unknown]
  - Anaemia [Unknown]
  - Urinary tract infection [Unknown]
  - Vascular calcification [Unknown]
  - Fracture delayed union [Unknown]
  - Osteoarthritis [Unknown]
  - Spinal disorder [Unknown]
  - Incision site infection [Unknown]
  - Cellulitis [Unknown]
  - Incisional drainage [Unknown]
  - Abdominal tenderness [Unknown]
  - Sinus tachycardia [Unknown]
  - Supraventricular extrasystoles [Unknown]
  - Fall [Unknown]
  - Gastrooesophageal reflux disease [Unknown]
